FAERS Safety Report 7656722-2 (Version None)
Quarter: 2011Q3

REPORT INFORMATION
  Report Type: 
  Country: None (occurrence: None)
  Receive Date: 20110804
  Receipt Date: 20110801
  Transmission Date: 20111222
  Serious: Yes (Hospitalization)
  Sender: FDA-Public Use
  Company Number: IL-SANOFI-AVENTIS-2011SA043509

PATIENT
  Age: 45 Year
  Sex: Male

DRUGS (7)
  1. RAMIPRIL [Suspect]
  2. BETA BLOCKING AGENTS [Concomitant]
  3. PLAVIX [Concomitant]
  4. LANTUS [Suspect]
     Indication: DIABETES MELLITUS
  5. ASPIRIN [Concomitant]
  6. APIDRA [Suspect]
     Indication: DIABETES MELLITUS
  7. SERUMLIPIDREDUCING AGENTS [Concomitant]

REACTIONS (3)
  - RASH [None]
  - CHEST PAIN [None]
  - PRURITUS [None]
